FAERS Safety Report 6192010-1 (Version None)
Quarter: 2009Q2

REPORT INFORMATION
  Report Type: 
  Country: None (occurrence: None)
  Receive Date: 20090515
  Receipt Date: 20090506
  Transmission Date: 20091009
  Serious: Yes (Other)
  Sender: FDA-Public Use
  Company Number: B0573421A

PATIENT
  Age: 87 Year
  Sex: Female

DRUGS (8)
  1. ARIXTRA [Suspect]
     Indication: THROMBOSIS PROPHYLAXIS
     Dosage: 2.5MG PER DAY
     Route: 058
     Dates: start: 20090210
  2. RIFAMPIN AND ISONIAZID [Suspect]
     Indication: TUBERCULOSIS
     Dosage: 2TAB IN THE MORNING
     Route: 048
     Dates: start: 20090304
  3. LANTUS [Suspect]
     Dosage: 20IU IN THE MORNING
     Route: 058
     Dates: start: 20090210
  4. FLAGYL [Suspect]
     Dosage: 1500MG PER DAY
     Route: 048
     Dates: start: 20090223, end: 20090303
  5. ROCEPHIN [Suspect]
     Dosage: 1G PER DAY
     Route: 058
     Dates: start: 20090223, end: 20090303
  6. OFLOXACIN [Suspect]
     Dosage: 200MG TWICE PER DAY
     Route: 048
     Dates: start: 20090214, end: 20090220
  7. EUPRESSYL [Concomitant]
     Dosage: 120MG PER DAY
     Route: 048
  8. TRIVASTAL [Concomitant]
     Dosage: 50MG PER DAY
     Route: 048
     Dates: end: 20090218

REACTIONS (1)
  - CHOLESTASIS [None]
